FAERS Safety Report 7621411-7 (Version None)
Quarter: 2011Q3

REPORT INFORMATION
  Report Type: 
  Country: None (occurrence: None)
  Receive Date: 20110719
  Receipt Date: 20110711
  Transmission Date: 20111222
  Serious: Yes (Hospitalization)
  Sender: FDA-Public Use
  Company Number: GB-SANOFI-AVENTIS-2011SA044881

PATIENT
  Age: 66 Year
  Sex: Male

DRUGS (6)
  1. ALL OTHER THERAPEUTIC PRODUCTS [Suspect]
     Dates: start: 20100927
  2. PLAVIX [Suspect]
     Indication: ANTIPLATELET THERAPY
     Route: 048
     Dates: start: 20100927, end: 20100927
  3. PLAVIX [Suspect]
     Route: 048
     Dates: start: 20100101
  4. ALL OTHER THERAPEUTIC PRODUCTS [Suspect]
     Indication: CARDIAC STRESS TEST ABNORMAL
     Dates: start: 20100927
  5. ATORVASTATIN [Concomitant]
     Route: 048
  6. ASPIRIN [Suspect]
     Indication: ANTIPLATELET THERAPY
     Route: 048
     Dates: start: 20100101

REACTIONS (1)
  - IN-STENT CORONARY ARTERY RESTENOSIS [None]
